FAERS Safety Report 20354678 (Version 2)
Quarter: 2022Q1

REPORT INFORMATION
  Report Type: Report from Study
  Country: ES (occurrence: ES)
  Receive Date: 20220120
  Receipt Date: 20220217
  Transmission Date: 20220423
  Serious: Yes (Death, Hospitalization)
  Sender: FDA-Public Use
  Company Number: ES-NOVARTISPH-NVSC2022ES008245

PATIENT
  Age: 76 Year
  Sex: Female

DRUGS (3)
  1. CAPMATINIB [Suspect]
     Active Substance: CAPMATINIB
     Indication: Adenocarcinoma metastatic
     Dosage: UNK
     Route: 065
     Dates: start: 20211126
  2. CAPMATINIB [Suspect]
     Active Substance: CAPMATINIB
     Indication: Metastases to pleura
  3. CAPMATINIB [Suspect]
     Active Substance: CAPMATINIB
     Indication: Metastases to bone

REACTIONS (3)
  - Malaise [Fatal]
  - Hepatotoxicity [Fatal]
  - Nausea [Fatal]
